FAERS Safety Report 8966117 (Version 1)
Quarter: 2012Q4

REPORT INFORMATION
  Report Type: 
  Country: US (occurrence: US)
  Receive Date: 20121217
  Receipt Date: 20121217
  Transmission Date: 20130627
  Serious: No
  Sender: FDA-Public Use
  Company Number: US-PFIZER INC-2012315162

PATIENT
  Age: 36 Year
  Sex: Female

DRUGS (7)
  1. CELEBREX [Suspect]
     Dosage: 200 mg, UNK
  2. PREDNISOLONE [Suspect]
     Dosage: UNK
  3. FIORINAL [Suspect]
     Dosage: UNK
  4. KLONOPIN [Suspect]
     Dosage: UNK
  5. LASIX [Suspect]
     Dosage: 20
  6. DILAUDID [Suspect]
     Dosage: UNK
  7. SYNTHROID [Suspect]

REACTIONS (1)
  - Drug hypersensitivity [Unknown]
